FAERS Safety Report 7603300-7 (Version None)
Quarter: 2011Q3

REPORT INFORMATION
  Report Type: 
  Country: None (occurrence: None)
  Receive Date: 20110701
  Receipt Date: 20110622
  Transmission Date: 20111222
  Serious: Yes (Hospitalization)
  Sender: FDA-Public Use
  Company Number: 2011002306

PATIENT
  Age: 65 Year
  Sex: Female

DRUGS (6)
  1. VITAMIN A [Concomitant]
  2. TARCEVA [Suspect]
     Indication: NON-SMALL CELL LUNG CANCER
     Dosage: 150 MG, UID/QD, ORAL
     Route: 048
     Dates: start: 20100830, end: 20110509
  3. HIRUDOID (HEPARINOID) [Concomitant]
  4. WHITE PETROLATUM [Concomitant]
  5. OFLOXACIN [Concomitant]
  6. FLUOROMETHOLONE (FLUOROMETHOLONE) [Concomitant]

REACTIONS (7)
  - PULMONARY INFARCTION [None]
  - DRUG INTERACTION [None]
  - PULMONARY EMBOLISM [None]
  - HAEMANGIOMA [None]
  - PULMONARY ARTERY THROMBOSIS [None]
  - OVARIAN NEOPLASM [None]
  - VENA CAVA THROMBOSIS [None]
